FAERS Safety Report 6299676-6 (Version None)
Quarter: 2009Q3

REPORT INFORMATION
  Report Type: 
  Country: None (occurrence: None)
  Receive Date: 20090805
  Receipt Date: 20090805
  Transmission Date: 20100115
  Serious: Yes (Hospitalization)
  Sender: FDA-Public Use
  Company Number: None

PATIENT
  Age: 49 Year
  Sex: Female
  Weight: 114.3065 kg

DRUGS (2)
  1. LIPITOR [Suspect]
     Indication: HYPERLIPIDAEMIA
     Dosage: 10MG ONCE A DAY PO
     Route: 048
     Dates: start: 20080725, end: 20090521
  2. SULFAMETHOXAZOLE AND TRIMETHOPRIM [Suspect]
     Indication: SKIN INFECTION
     Dosage: 800/160MG TWICE A DAY PO
     Route: 048
     Dates: start: 20090512, end: 20090521

REACTIONS (3)
  - CHILLS [None]
  - PYREXIA [None]
  - RHABDOMYOLYSIS [None]
